FAERS Safety Report 24178192 (Version 4)
Quarter: 2024Q4

REPORT INFORMATION
  Report Type: Spontaneous
  Country: US (occurrence: US)
  Receive Date: 20240806
  Receipt Date: 20241202
  Transmission Date: 20250114
  Serious: No
  Sender: PFIZER
  Company Number: US-PFIZER INC-PV202400081092

PATIENT
  Age: 14 Year
  Sex: Male
  Weight: 53 kg

DRUGS (5)
  1. GENOTROPIN [Suspect]
     Active Substance: SOMATROPIN
     Indication: Hypopituitarism
     Dosage: 2 MG, DAILY
     Route: 058
     Dates: start: 20220926
  2. GENOTROPIN [Suspect]
     Active Substance: SOMATROPIN
     Indication: Growth hormone deficiency
     Dosage: 1.8 MG, 1X/DAY, 7 DAYS/WEEK
     Route: 058
  3. NUTROPIN [Concomitant]
     Active Substance: SOMATROPIN
     Indication: Growth hormone deficiency
     Dosage: 2 MG, DAILY
     Route: 058
  4. VYVANSE [Concomitant]
     Active Substance: LISDEXAMFETAMINE DIMESYLATE
     Indication: Attention deficit hyperactivity disorder
     Dosage: 60 MG, 1X/DAY
     Route: 048
  5. TESTOSTERONE [Concomitant]
     Active Substance: TESTOSTERONE
     Indication: Puberty
     Dosage: UNK
     Dates: start: 20240314, end: 20240614

REACTIONS (5)
  - Blood glucose increased [Unknown]
  - Blood calcium increased [Unknown]
  - Product prescribing error [Unknown]
  - Device use error [Unknown]
  - Device breakage [Unknown]

NARRATIVE: CASE EVENT DATE: 20240702
